FAERS Safety Report 4647284-2 (Version None)
Quarter: 2005Q2

REPORT INFORMATION
  Report Type: 
  Country: None (occurrence: None)
  Receive Date: 20050426
  Receipt Date: 20050417
  Transmission Date: 20051028
  Serious: No
  Sender: FDA-Public Use
  Company Number: 05H-028-0297898-00

PATIENT
  Age: 72 Year
  Sex: Male

DRUGS (6)
  1. HEPARIN SODIUM [Suspect]
     Indication: ANTICOAGULANT THERAPY
     Dosage: 35000 UNIT,  INTRAVENOUS, DURING SURGERY
     Route: 042
  2. HEPARIN SODIUM [Suspect]
     Indication: ANTICOAGULANT THERAPY
     Dosage: 5000 UNIT, TWICE A DAY,  POST OPERATIVE
     Route: 058
  3. HEPARIN SODIUM [Suspect]
     Indication: THROMBOSIS PROPHYLAXIS
     Dosage: 5000 UNIT, ONCE, INTRAVENOUS BOLUS
     Route: 040
  4. ACETYL SALICYLIC ACID USP BAT [Concomitant]
  5. CLOPIDOGREL BISULFATE [Concomitant]
  6. ATORVASTATIN CALCIUM [Concomitant]

REACTIONS (6)
  - CAROTID ARTERY STENOSIS [None]
  - CEREBRAL INFARCTION [None]
  - CHEST PAIN [None]
  - HEPARIN-INDUCED THROMBOCYTOPENIA [None]
  - POST PROCEDURAL COMPLICATION [None]
  - THROMBOTIC STROKE [None]
